FAERS Safety Report 21824319 (Version 1)
Quarter: 2023Q1

REPORT INFORMATION
  Report Type: Spontaneous
  Country: RU (occurrence: None)
  Receive Date: 20230105
  Receipt Date: 20230105
  Transmission Date: 20230417
  Serious: Yes (Other)
  Sender: FDA-Public Use
  Company Number: 2022A420821

PATIENT
  Sex: Male
  Weight: 90 kg

DRUGS (2)
  1. IMFINZI [Suspect]
     Active Substance: DURVALUMAB
     Indication: Lung neoplasm malignant
     Dosage: 3 COURSES OF DURVALUMAB WERE PRESCRIBED.
     Route: 042
     Dates: end: 202210
  2. IMFINZI [Suspect]
     Active Substance: DURVALUMAB
     Indication: Adenocarcinoma
     Dosage: 3 COURSES OF DURVALUMAB WERE PRESCRIBED.
     Route: 042
     Dates: end: 202210

REACTIONS (2)
  - Metastases to liver [Unknown]
  - Metastases to lung [Unknown]
